FAERS Safety Report 8999058 (Version 1)
Quarter: 2013Q1

REPORT INFORMATION
  Report Type: Spontaneous
  Country: US (occurrence: US)
  Receive Date: 20130103
  Receipt Date: 20130103
  Transmission Date: 20140127
  Serious: Yes (Death)
  Sender: FDA-Public Use
  Company Number: PHEH2012US025594

PATIENT
  Age: 78 Year
  Sex: Female

DRUGS (1)
  1. TOBI [Suspect]
     Dosage: 1 VIAL BID

REACTIONS (1)
  - Death [Fatal]
